FAERS Safety Report 5026512-8 (Version None)
Quarter: 2006Q2

REPORT INFORMATION
  Report Type: 
  Country: None (occurrence: None)
  Receive Date: 20060615
  Receipt Date: 20060508
  Transmission Date: 20061013
  Serious: Yes (Hospitalization)
  Sender: FDA-Public Use
  Company Number: PHHO2006DE07404

PATIENT
  Age: 50 Year
  Sex: Female
  Weight: 61 kg

DRUGS (3)
  1. NO TREATMENT RECEIVED NOMED [Suspect]
     Indication: RENAL TRANSPLANT
     Dosage: NO TREATMENT
  2. SANDIMMUNE [Suspect]
     Indication: RENAL TRANSPLANT
     Dosage: 220 MG / DAY
     Route: 048
     Dates: start: 20060111, end: 20060124
  3. SANDIMMUNE [Suspect]
     Dosage: 150 MG / DAY
     Route: 048
     Dates: start: 20060203, end: 20060504

REACTIONS (4)
  - BLOOD CREATININE INCREASED [None]
  - BLOOD THYROID STIMULATING HORMONE INCREASED [None]
  - KIDNEY TRANSPLANT REJECTION [None]
  - NEPHROPATHY TOXIC [None]
